FAERS Safety Report 15737677 (Version 2)
Quarter: 2020Q2

REPORT INFORMATION
  Report Type: Report from Study
  Country: None (occurrence: BR)
  Receive Date: 20181219
  Receipt Date: 20200427
  Transmission Date: 20200713
  Serious: Yes (Death, Hospitalization, Disabling, Other)
  Sender: FDA-Public Use
  Company Number: BR-ABBVIE-18K-020-2591172-00

PATIENT
  Age: 74 Year
  Sex: Female
  Weight: 55 kg

DRUGS (1)
  1. HUMIRA [Suspect]
     Active Substance: ADALIMUMAB
     Indication: RHEUMATOID ARTHRITIS
     Route: 058
     Dates: start: 20140301

REACTIONS (19)
  - Metabolic disorder [Recovered/Resolved]
  - Blood sodium decreased [Unknown]
  - Nausea [Unknown]
  - Peripheral swelling [Unknown]
  - Blood potassium decreased [Unknown]
  - Vomiting [Unknown]
  - Hypophagia [Not Recovered/Not Resolved]
  - Metabolic disorder [Unknown]
  - Confusional state [Unknown]
  - Malaise [Unknown]
  - Body height decreased [Unknown]
  - Pulmonary hypertension [Not Recovered/Not Resolved]
  - Joint swelling [Unknown]
  - Pelvic fracture [Unknown]
  - Atrial fibrillation [Fatal]
  - Acute pulmonary oedema [Unknown]
  - Asthenia [Unknown]
  - Malaise [Recovered/Resolved]
  - Fall [Unknown]

NARRATIVE: CASE EVENT DATE: 2017
